FAERS Safety Report 4494367-6 (Version None)
Quarter: 2004Q4

REPORT INFORMATION
  Report Type: 
  Country: None (occurrence: None)
  Receive Date: 20041102
  Receipt Date: 20041020
  Transmission Date: 20050328
  Serious: Yes (Death, Life-Threatening, Hospitalization)
  Sender: FDA-Public Use
  Company Number: FR_041005061

PATIENT
  Age: 8 Year
  Sex: Male
  Weight: 50 kg

DRUGS (5)
  1. XIGRIS [Suspect]
     Indication: SEPTIC SHOCK
     Dosage: 1.2 MG HOUR
     Dates: start: 20040829, end: 20040830
  2. FENTANYL [Concomitant]
  3. MIDAZOLAM HCL [Concomitant]
  4. DOPAMINE HCL [Concomitant]
  5. NORADRENALINE [Concomitant]

REACTIONS (6)
  - CARDIAC ARREST [None]
  - CATHETER RELATED COMPLICATION [None]
  - HAEMODIALYSIS [None]
  - HYPERTHERMIA MALIGNANT [None]
  - HYPOTENSION [None]
  - URINE OUTPUT DECREASED [None]
